FAERS Safety Report 10744433 (Version 5)
Quarter: 2015Q2

REPORT INFORMATION
  Report Type: Spontaneous
  Country: US (occurrence: US)
  Receive Date: 20150128
  Receipt Date: 20150511
  Transmission Date: 20150821
  Serious: Yes (Hospitalization, Congenital Anomaly, Other)
  Sender: FDA-Public Use
  Company Number: US-APOTEX-2015AP005427

PATIENT
  Age: 0 Day
  Sex: Female

DRUGS (5)
  1. PNV [Concomitant]
     Indication: PRODUCT USED FOR UNKNOWN INDICATION
     Route: 065
  2. PAXIL [Suspect]
     Active Substance: PAROXETINE HYDROCHLORIDE
     Indication: STRESS
     Dosage: 20 MG, DAILY
     Route: 064
  3. PAXIL [Suspect]
     Active Substance: PAROXETINE HYDROCHLORIDE
     Indication: DEPRESSION
  4. PROGESTERONE. [Concomitant]
     Active Substance: PROGESTERONE
     Indication: PRODUCT USED FOR UNKNOWN INDICATION
     Route: 064
  5. INDOMETHACIN                       /00003801/ [Concomitant]
     Active Substance: INDOMETHACIN
     Indication: POLYHYDRAMNIOS
     Dosage: UNK
     Route: 064

REACTIONS (31)
  - Cardiac failure congestive [Unknown]
  - Congenital eye disorder [Unknown]
  - Atrial fibrillation [Unknown]
  - Congenital myopia [Unknown]
  - Atrial septal defect [Unknown]
  - Hypotonia neonatal [Unknown]
  - Anaemia [Unknown]
  - Polyhydramnios [Unknown]
  - Wolff-Parkinson-White syndrome [Unknown]
  - Electrocardiogram QT prolonged [Unknown]
  - Tricuspid valve incompetence [Unknown]
  - Anxiety [Unknown]
  - Supraventricular tachycardia [Recovered/Resolved]
  - Congenital central nervous system anomaly [Unknown]
  - Congenital pulmonary artery anomaly [Unknown]
  - Intestinal atresia [Unknown]
  - Patent ductus arteriosus [Recovered/Resolved]
  - Hypoglycaemia neonatal [Unknown]
  - Jaundice [Recovered/Resolved]
  - Weight decreased [Unknown]
  - Premature baby [Unknown]
  - Pulseless electrical activity [Recovered/Resolved]
  - VIIth nerve paralysis [Unknown]
  - Mitral valve disease [Unknown]
  - Congenital muscle absence [Unknown]
  - Hypocalcaemia [Unknown]
  - Dental alveolar anomaly [Unknown]
  - Myocardial ischaemia [Unknown]
  - Visual impairment [Unknown]
  - Feeding disorder neonatal [Unknown]
  - Foetal exposure during pregnancy [Unknown]

NARRATIVE: CASE EVENT DATE: 19950811
